FAERS Safety Report 6923829-4 (Version None)
Quarter: 2010Q3

REPORT INFORMATION
  Report Type: 
  Country: None (occurrence: None)
  Receive Date: 20100813
  Receipt Date: 20090922
  Transmission Date: 20110219
  Serious: No
  Sender: FDA-Public Use
  Company Number: US-BRISTOL-MYERS SQUIBB COMPANY-14744502

PATIENT
  Age: 36 Year
  Sex: Male
  Weight: 69 kg

DRUGS (3)
  1. REYATAZ [Suspect]
     Indication: HIV INFECTION
     Route: 048
     Dates: start: 20090728
  2. MARAVIROC [Concomitant]
  3. RITONAVIR [Concomitant]

REACTIONS (1)
  - CALCULUS URETERIC [None]
